FAERS Safety Report 14778614 (Version 2)
Quarter: 2018Q2

REPORT INFORMATION
  Report Type: Spontaneous
  Country: AU (occurrence: AU)
  Receive Date: 20180419
  Receipt Date: 20180606
  Transmission Date: 20180711
  Serious: No
  Sender: FDA-Public Use
  Company Number: AU-SUNOVION-2018DSP003289

PATIENT
  Age: 65 Year
  Sex: Female

DRUGS (1)
  1. LATUDA [Suspect]
     Active Substance: LURASIDONE HYDROCHLORIDE
     Indication: BIPOLAR DISORDER
     Route: 048

REACTIONS (7)
  - Akathisia [Unknown]
  - Parkinsonism [Unknown]
  - Restless legs syndrome [Unknown]
  - Oromandibular dystonia [Unknown]
  - Gait disturbance [Unknown]
  - Off label use [Unknown]
  - Restlessness [Unknown]
